FAERS Safety Report 4784259-7 (Version None)
Quarter: 2005Q3

REPORT INFORMATION
  Report Type: 
  Country: None (occurrence: None)
  Receive Date: 20050930
  Receipt Date: 20041231
  Transmission Date: 20060218
  Serious: Yes (Hospitalization)
  Sender: FDA-Public Use
  Company Number: GBWYE320106JAN05

PATIENT

DRUGS (6)
  1. ENBREL [Suspect]
     Indication: RHEUMATOID ARTHRITIS
     Route: 058
     Dates: start: 20040301, end: 20040622
  2. ARTHROTEC [Concomitant]
  3. DEXTROPROPOXYPHENE HYDROCHLORIDE/PARACETAMOL [Concomitant]
  4. TRAMADOL [Concomitant]
  5. NEXIUM [Concomitant]
  6. FUROSEMIDE [Concomitant]

REACTIONS (4)
  - ATRIAL FIBRILLATION [None]
  - CARDIAC FAILURE CONGESTIVE [None]
  - PULMONARY EMBOLISM [None]
  - URINARY TRACT INFECTION [None]
